FAERS Safety Report 26123227 (Version 1)
Quarter: 2025Q4

REPORT INFORMATION
  Report Type: Spontaneous
  Country: EU (occurrence: EU)
  Receive Date: 20251204
  Receipt Date: 20251204
  Transmission Date: 20260118
  Serious: No
  Sender: AMGEN
  Company Number: EU-AMGEN-BELSP2025235886

PATIENT
  Age: 65 Year
  Sex: Female

DRUGS (1)
  1. ARANESP [Suspect]
     Active Substance: DARBEPOETIN ALFA
     Indication: Product used for unknown indication
     Dosage: UNK
     Route: 065

REACTIONS (3)
  - Anti-erythropoietin antibody positive [Unknown]
  - Anaemia [Unknown]
  - Biopsy bone marrow abnormal [Unknown]
